FAERS Safety Report 9458142 (Version 1)
Quarter: 2013Q3

REPORT INFORMATION
  Report Type: Spontaneous
  Country: US (occurrence: None)
  Receive Date: 20130812
  Receipt Date: 20130812
  Transmission Date: 20140515
  Serious: Yes (Life-Threatening, Hospitalization)
  Sender: FDA-Public Use
  Company Number: 1713747-2013-99929

PATIENT
  Sex: Female

DRUGS (2)
  1. DELFLEX [Suspect]
     Indication: PERITONEAL DIALYSIS
     Dosage: 5X
     Dates: start: 20130701
  2. PERITONEAL DIALYSIS CYCLER..... [Concomitant]

REACTIONS (2)
  - Cardiac arrest [None]
  - Pain in extremity [None]
